FAERS Safety Report 5263532-2 (Version None)
Quarter: 2007Q1

REPORT INFORMATION
  Report Type: 
  Country: None (occurrence: None)
  Receive Date: 20070313
  Receipt Date: 20070306
  Transmission Date: 20070707
  Serious: Yes (Hospitalization)
  Sender: FDA-Public Use
  Company Number: FR-BRISTOL-MYERS SQUIBB COMPANY-13699418

PATIENT
  Age: 39 Year
  Sex: Male

DRUGS (4)
  1. FOZIRETIC TABS 20MG/12.5MG [Suspect]
     Indication: ESSENTIAL HYPERTENSION
     Dosage: 20 MG/12.5 MG TABLETS
     Route: 048
     Dates: start: 20050615, end: 20070210
  2. IBUPROFEN [Suspect]
     Indication: TONSILLITIS STREPTOCOCCAL
     Route: 048
     Dates: start: 20070207, end: 20070207
  3. KETOPROFEN [Suspect]
     Route: 048
     Dates: start: 20070207, end: 20070208
  4. PRISTINAMYCIN [Suspect]

REACTIONS (2)
  - ACUTE GENERALISED EXANTHEMATOUS PUSTULOSIS [None]
  - RENAL FAILURE ACUTE [None]
